FAERS Safety Report 9193313 (Version 1)
Quarter: 2013Q1

REPORT INFORMATION
  Report Type: Spontaneous
  Country: US (occurrence: US)
  Receive Date: 20130327
  Receipt Date: 20130327
  Transmission Date: 20140127
  Serious: No
  Sender: FDA-Public Use
  Company Number: US-009507513-1303USA008809

PATIENT
  Sex: Female

DRUGS (17)
  1. LOSARTAN POTASSIUM AND HYDROCHLOROTHIAZIDE TABLETS [Suspect]
     Dosage: 1 DF, QD
     Route: 048
  2. LISINOPRIL [Suspect]
  3. ABILIFY [Suspect]
     Dosage: 1 DF, QD
     Route: 048
  4. PROZAC [Suspect]
     Dosage: 3 DF, QAM
     Route: 048
  5. HYDROCHLOROTHIAZIDE [Suspect]
     Dosage: 1 DF, QD
     Route: 048
  6. TOPROL XL TABLETS [Suspect]
     Dosage: 1 DF, QD
     Route: 048
  7. LYRICA [Suspect]
     Dosage: 1 DF, BID
     Route: 048
  8. ZOFRAN [Suspect]
     Indication: NAUSEA
     Dosage: 1 TABLET ORALLY EVERY 8 HRS PRN NAUSEA
     Route: 048
  9. COLCRYS [Suspect]
     Dosage: 1 DF, BID
     Route: 048
  10. OMEPRAZOLE [Suspect]
     Dosage: 1CAPSULE DELAYED RELEASEF, BID
     Route: 048
  11. GASTROINTESTINAL PREPARATIONS (UNSPECIFIED) [Suspect]
     Indication: CONSTIPATION PROPHYLAXIS
     Dosage: 1 TABLET AS NEEDED ORALLY FOUR TIMES A DAY
     Route: 048
  12. CLONAZEPAM [Suspect]
     Dosage: 1 DF, BID
     Route: 048
  13. CIPRO [Suspect]
     Dosage: 1 DF, Q12H
     Route: 048
  14. ARTHROTEC [Suspect]
     Dosage: 1 DF, BID, 75?200 MG-MCG TABLET
     Route: 048
  15. ROBAXIN [Suspect]
     Indication: PAIN
     Dosage: 1 TABLET ORALLY EVERY 8 HRS PRN
     Route: 048
  16. TRAZODONE HYDROCHLORIDE [Suspect]
     Dosage: 1 DF, QPM
     Route: 048
  17. FLEXERIL [Suspect]
     Dosage: 1 DF, TID
     Route: 048

REACTIONS (8)
  - Osteoarthritis [Unknown]
  - Gastrooesophageal reflux disease [Unknown]
  - Pain [Unknown]
  - Hypertension [Unknown]
  - Pain [Unknown]
  - Depression [Unknown]
  - Anxiety [Unknown]
  - Nausea [Unknown]
